FAERS Safety Report 25598953 (Version 4)
Quarter: 2025Q3

REPORT INFORMATION
  Report Type: Spontaneous
  Country: JP (occurrence: JP)
  Receive Date: 20250724
  Receipt Date: 20250919
  Transmission Date: 20251021
  Serious: Yes (Hospitalization, Other)
  Sender: BRISTOL-MYERS SQUIBB COMPANY
  Company Number: JP-BRISTOL-MYERS SQUIBB COMPANY-2024-072801

PATIENT
  Age: 78 Year
  Sex: Male
  Weight: 52.9 kg

DRUGS (10)
  1. YERVOY [Suspect]
     Active Substance: IPILIMUMAB
     Indication: Malignant melanoma
     Dates: start: 20240122, end: 20240122
  2. YERVOY [Suspect]
     Active Substance: IPILIMUMAB
     Dates: start: 20240219, end: 20240219
  3. OPDIVO [Suspect]
     Active Substance: NIVOLUMAB
     Indication: Malignant melanoma
     Dates: start: 20240122, end: 20240122
  4. OPDIVO [Suspect]
     Active Substance: NIVOLUMAB
     Dates: start: 20240219, end: 20240219
  5. OPDIVO [Suspect]
     Active Substance: NIVOLUMAB
  6. OPDIVO [Suspect]
     Active Substance: NIVOLUMAB
  7. OPDIVO [Suspect]
     Active Substance: NIVOLUMAB
  8. OPDIVO [Suspect]
     Active Substance: NIVOLUMAB
  9. OPDIVO [Suspect]
     Active Substance: NIVOLUMAB
  10. OPDIVO [Suspect]
     Active Substance: NIVOLUMAB

REACTIONS (1)
  - Secondary adrenocortical insufficiency [Recovered/Resolved]

NARRATIVE: CASE EVENT DATE: 20240326
